FAERS Safety Report 4502613-5 (Version None)
Quarter: 2004Q3

REPORT INFORMATION
  Report Type: 
  Country: None (occurrence: None)
  Receive Date: 20040928
  Receipt Date: 20040709
  Transmission Date: 20050211
  Serious: No
  Sender: FDA-Public Use
  Company Number: 04P-163-0267302-00

PATIENT

DRUGS (1)
  1. HUMIRA [Suspect]
     Dosage: INJECTION

REACTIONS (1)
  - INJECTION SITE PAIN [None]
